FAERS Safety Report 7643647-1 (Version None)
Quarter: 2011Q3

REPORT INFORMATION
  Report Type: 
  Country: None (occurrence: None)
  Receive Date: 20110722
  Receipt Date: 20110720
  Transmission Date: 20111222
  Serious: No
  Sender: FDA-Public Use
  Company Number: CRC-11-139

PATIENT
  Age: 42 Year
  Sex: Female
  Weight: 108.8633 kg

DRUGS (1)
  1. HYDROCODONE BITARTRATE + ACETAMINOPHEN [Suspect]
     Dosage: ORAL
     Route: 048
     Dates: start: 20110519, end: 20110523

REACTIONS (5)
  - PRURITUS [None]
  - SOMNOLENCE [None]
  - RASH [None]
  - FATIGUE [None]
  - DIZZINESS [None]
